FAERS Safety Report 24025065 (Version 1)
Quarter: 2024Q2

REPORT INFORMATION
  Report Type: Spontaneous
  Country: CN (occurrence: CN)
  Receive Date: 20240628
  Receipt Date: 20240628
  Transmission Date: 20240716
  Serious: No
  Sender: FDA-Public Use
  Company Number: CN-ROCHE-3392318

PATIENT
  Age: 42 Year
  Sex: Female
  Weight: 40.0 kg

DRUGS (3)
  1. ALECENSA [Suspect]
     Active Substance: ALECTINIB HYDROCHLORIDE
     Indication: Lung adenocarcinoma stage IV
     Route: 048
     Dates: start: 202004
  2. ALDESLEUKIN [Concomitant]
     Active Substance: ALDESLEUKIN
     Indication: Lung adenocarcinoma stage IV
     Dates: start: 20200414
  3. CODEINE PHOSPHATE\IBUPROFEN [Concomitant]
     Active Substance: CODEINE PHOSPHATE\IBUPROFEN
     Route: 048
     Dates: start: 20221023

REACTIONS (1)
  - Disease progression [Unknown]
